FAERS Safety Report 17350387 (Version 4)
Quarter: 2020Q2

REPORT INFORMATION
  Report Type: Report from Study
  Country: CA (occurrence: CA)
  Receive Date: 20200130
  Receipt Date: 20200424
  Transmission Date: 20200713
  Serious: Yes (Hospitalization)
  Sender: FDA-Public Use
  Company Number: CA-IPSEN BIOPHARMACEUTICALS, INC.-2020-01886

PATIENT
  Age: 60 Year
  Sex: Female
  Weight: 79.37 kg

DRUGS (5)
  1. CALCIUM [Concomitant]
     Active Substance: CALCIUM
     Route: 048
  2. SOMATULINE AUTOGEL [Suspect]
     Active Substance: LANREOTIDE ACETATE
     Indication: NEUROENDOCRINE TUMOUR
     Dosage: 120 MILLIGRAM/0.5ML
     Route: 058
     Dates: start: 20191230
  3. COVERSYL [Concomitant]
     Active Substance: PERINDOPRIL
     Route: 048
  4. PANTOLOC [Concomitant]
     Active Substance: PANTOPRAZOLE SODIUM
     Route: 048
  5. GLICLAZIDE [Concomitant]
     Active Substance: GLICLAZIDE
     Route: 048

REACTIONS (13)
  - Injection site pain [Unknown]
  - Flatulence [Unknown]
  - Diarrhoea [Unknown]
  - Rectal haemorrhage [Unknown]
  - Dehydration [Unknown]
  - Faeces discoloured [Unknown]
  - Vomiting [Unknown]
  - Injection site mass [Recovering/Resolving]
  - Nausea [Unknown]
  - Abdominal pain [Unknown]
  - Pain [Unknown]
  - Product administered at inappropriate site [Unknown]
  - Mass [Unknown]

NARRATIVE: CASE EVENT DATE: 2020
